FAERS Safety Report 9439671 (Version 1)
Quarter: 2013Q3

REPORT INFORMATION
  Report Type: Spontaneous
  Country: US (occurrence: US)
  Receive Date: 20130805
  Receipt Date: 20130805
  Transmission Date: 20140515
  Serious: No
  Sender: FDA-Public Use
  Company Number: US-PFIZER INC-2013225186

PATIENT
  Age: 65 Year
  Sex: Female
  Weight: 136 kg

DRUGS (4)
  1. ADVIL PM [Suspect]
     Indication: INSOMNIA
     Dosage: IBUPROFEN 200 MG/DIPHENHYDRAMINE CITRATE 38MG, DAILY
     Dates: start: 201304
  2. LITHIUM CARBONATE [Suspect]
     Indication: PAIN
     Dosage: 300 MG, 2X/DAY
  3. PERCOCET [Suspect]
     Indication: PAIN
     Dosage: 10/325MG, DAILY
  4. BYSTOLIC [Concomitant]
     Indication: HYPERTENSION
     Dosage: 5 MG, 1X/DAY

REACTIONS (1)
  - Somnolence [Recovered/Resolved]
